FAERS Safety Report 4536941-4 (Version None)
Quarter: 2004Q4

REPORT INFORMATION
  Report Type: 
  Country: None (occurrence: None)
  Receive Date: 20041220
  Receipt Date: 20041208
  Transmission Date: 20050328
  Serious: Yes (Hospitalization)
  Sender: FDA-Public Use
  Company Number: 2004105857

PATIENT
  Age: 38 Year
  Sex: Male

DRUGS (3)
  1. NICOTINE [Suspect]
     Indication: SMOKING CESSATION THERAPY
  2. TRAMADOL HCL [Concomitant]
  3. CODEINE PHOSPHATE AND ACETAMINOPHEN [Concomitant]

REACTIONS (2)
  - COLITIS ULCERATIVE [None]
  - DRUG WITHDRAWAL SYNDROME [None]
